FAERS Safety Report 4978935-0 (Version None)
Quarter: 2006Q2

REPORT INFORMATION
  Report Type: 
  Country: None (occurrence: None)
  Receive Date: 20060419
  Receipt Date: 20060419
  Transmission Date: 20061013
  Serious: Yes (Life-Threatening, Other)
  Sender: FDA-Public Use
  Company Number: None

PATIENT
  Age: 35 Year
  Sex: Female

DRUGS (2)
  1. PAXIL [Suspect]
     Indication: PANIC ATTACK
     Dosage: 20MG  ONCE/DAY PO
     Route: 048
     Dates: start: 20000101
  2. PAXIL [Suspect]
     Indication: SOCIAL PHOBIA
     Dosage: 20MG  ONCE/DAY PO
     Route: 048
     Dates: start: 20000101

REACTIONS (7)
  - ABNORMAL DREAMS [None]
  - ANGER [None]
  - DEPRESSION [None]
  - DRUG WITHDRAWAL SYNDROME [None]
  - HYPERACUSIS [None]
  - PHOTOPHOBIA [None]
  - SUICIDAL IDEATION [None]
